FAERS Safety Report 7571026-4 (Version None)
Quarter: 2011Q2

REPORT INFORMATION
  Report Type: 
  Country: None (occurrence: None)
  Receive Date: 20110622
  Receipt Date: 20110622
  Transmission Date: 20111010
  Serious: Yes (Other)
  Sender: FDA-Public Use
  Company Number: None

PATIENT
  Age: 68 Year
  Sex: Female
  Weight: 55.3388 kg

DRUGS (2)
  1. CEFTRIAXONE [Suspect]
     Dates: start: 20101208
  2. DEXAMETHASONE SODIUM PHOSPHATE [Suspect]
     Dates: start: 20101208

REACTIONS (5)
  - ABNORMAL SENSATION IN EYE [None]
  - VISUAL IMPAIRMENT [None]
  - PRODUCT CONTAMINATION [None]
  - PHOTOPSIA [None]
  - BLOOD PRESSURE INCREASED [None]
